FAERS Safety Report 6426851-X (Version None)
Quarter: 2009Q4

REPORT INFORMATION
  Report Type: 
  Country: None (occurrence: None)
  Receive Date: 20091030
  Receipt Date: 20091019
  Transmission Date: 20100525
  Serious: Yes (Other)
  Sender: FDA-Public Use
  Company Number: GXBR2009US01973

PATIENT
  Sex: Male

DRUGS (1)
  1. THIORIDAZINE HCL [Suspect]
     Dosage: TRANSPLACENTAL
     Route: 064

REACTIONS (5)
  - ATTENTION DEFICIT/HYPERACTIVITY DISORDER [None]
  - DRUG EXPOSURE DURING PREGNANCY [None]
  - LEARNING DISABILITY [None]
  - OBSESSIVE-COMPULSIVE DISORDER [None]
  - TOURETTE'S DISORDER [None]
